FAERS Safety Report 24698350 (Version 1)
Quarter: 2024Q4

REPORT INFORMATION
  Report Type: Spontaneous
  Country: CN (occurrence: CN)
  Receive Date: 20241204
  Receipt Date: 20241204
  Transmission Date: 20250115
  Serious: Yes (Hospitalization, Other)
  Sender: PFIZER
  Company Number: CN-PFIZER INC-PV202400155686

PATIENT
  Age: 19 Year
  Sex: Male

DRUGS (11)
  1. METHOTREXATE SODIUM [Suspect]
     Active Substance: METHOTREXATE SODIUM
     Indication: T-cell type acute leukaemia
     Dosage: 4.8 G, 1X/DAY
     Route: 041
     Dates: start: 20241104, end: 20241104
  2. METHOTREXATE SODIUM [Suspect]
     Active Substance: METHOTREXATE SODIUM
     Indication: Central nervous system leukaemia
     Dosage: 4.8 G, 1X/DAY
     Route: 041
     Dates: start: 20241118, end: 20241118
  3. PEGASPARGASE [Suspect]
     Active Substance: PEGASPARGASE
     Indication: T-cell type acute leukaemia
     Dosage: 3750 IU, 1X/DAY
     Route: 030
     Dates: start: 20241104, end: 20241104
  4. PEGASPARGASE [Suspect]
     Active Substance: PEGASPARGASE
     Dosage: 3750 IU, 1X/DAY
     Route: 030
     Dates: start: 20241107, end: 20241107
  5. PEGASPARGASE [Suspect]
     Active Substance: PEGASPARGASE
     Dosage: 3750 IU, 1X/DAY
     Route: 030
     Dates: start: 20241118, end: 20241118
  6. CYTARABINE [Concomitant]
     Active Substance: CYTARABINE
     Indication: Central nervous system leukaemia
     Dosage: 50 MG, 1X/DAY
     Route: 037
     Dates: start: 20241118, end: 20241118
  7. LEUCOVORIN CALCIUM [Concomitant]
     Active Substance: LEUCOVORIN CALCIUM
     Indication: Detoxification
     Dosage: UNK
     Dates: start: 20241104
  8. DEXAMETHASONE [Concomitant]
     Active Substance: DEXAMETHASONE
     Indication: Central nervous system leukaemia
     Dosage: UNK
     Dates: start: 20241118, end: 20241118
  9. PALONOSETRON [Concomitant]
     Active Substance: PALONOSETRON
     Indication: Prophylaxis of nausea and vomiting
     Dosage: UNK
     Dates: start: 20241118, end: 20241118
  10. ROXATIDINE [Concomitant]
     Active Substance: ROXATIDINE
     Indication: Abdominal discomfort
     Dosage: UNK
     Dates: start: 20241118, end: 20241118
  11. MAGNESIUM ISOGLYCYRRHIZINATE [Concomitant]
     Active Substance: MAGNESIUM ISOGLYCYRRHIZINATE
     Indication: Liver injury
     Dosage: UNK
     Dates: start: 20241118, end: 20241118

REACTIONS (6)
  - Pancreatitis acute [Recovering/Resolving]
  - Coagulopathy [Recovering/Resolving]
  - Blood creatinine increased [Recovering/Resolving]
  - Gastrointestinal injury [Recovering/Resolving]
  - Febrile infection [Unknown]
  - Drug clearance decreased [Unknown]

NARRATIVE: CASE EVENT DATE: 20241119
